FAERS Safety Report 6382732-1 (Version None)
Quarter: 2009Q3

REPORT INFORMATION
  Report Type: 
  Country: None (occurrence: None)
  Receive Date: 20090930
  Receipt Date: 20090922
  Transmission Date: 20100115
  Serious: Yes (Other)
  Sender: FDA-Public Use
  Company Number: US-BRISTOL-MYERS SQUIBB COMPANY-14796775

PATIENT
  Sex: Male

DRUGS (2)
  1. CARBIDOPA + LEVODOPA [Suspect]
     Route: 048
  2. CARBIDOPA-LEVODOPA EXTENDED RELEASE [Suspect]
     Dosage: TABS
     Route: 048

REACTIONS (1)
  - PARKINSON'S DISEASE [None]
